FAERS Safety Report 9989329 (Version 1)
Quarter: 2014Q1

REPORT INFORMATION
  Report Type: Spontaneous
  Country: US (occurrence: None)
  Receive Date: 20140123
  Receipt Date: 20140123
  Transmission Date: 20141002
  Serious: Yes (Hospitalization)
  Sender: FDA-Public Use
  Company Number: UTC-033581

PATIENT
  Age: 45 Year
  Sex: Female
  Weight: 102.3 kg

DRUGS (4)
  1. REMODULIN (5 MILLIGRAM/ MILLILITERS, INJECTION FOR INFUSION) (TREPROSTINIL SODIUM) [Suspect]
     Indication: PULMONARY ARTERIAL HYPERTENSION
     Dosage: 24.48 UG/KG (0.017 UG/KG , 1 IN 1 MIN),  SUBCUTANEOUS
     Route: 058
     Dates: start: 20130201
  2. ADCIRCA (TADALAFIL) [Concomitant]
  3. TRACLEER (BOSENTAN) [Concomitant]
  4. WARFARIN (UNKNOWN) [Concomitant]

REACTIONS (2)
  - Cardiac failure congestive [None]
  - Hypotension [None]
